FAERS Safety Report 4406189-2 (Version None)
Quarter: 2004Q3

REPORT INFORMATION
  Report Type: 
  Country: None (occurrence: None)
  Receive Date: 20040723
  Receipt Date: 20040510
  Transmission Date: 20050211
  Serious: No
  Sender: FDA-Public Use
  Company Number: US-GLAXOSMITHKLINE-A0510241A

PATIENT
  Age: 67 Year
  Sex: Female

DRUGS (10)
  1. AVANDIA [Suspect]
     Dosage: 4MG PER DAY
     Route: 048
     Dates: start: 20040319
  2. NEURONTIN [Concomitant]
  3. METFORMIN HCL [Concomitant]
  4. BELLADONNA [Concomitant]
  5. LIPITOR [Concomitant]
  6. IBUPROFEN [Concomitant]
  7. ATENOLOL [Concomitant]
  8. GLYBURIDE [Concomitant]
  9. PREMARIN [Concomitant]
  10. SPIRONOLACTONE [Concomitant]

REACTIONS (1)
  - OEDEMA PERIPHERAL [None]
